FAERS Safety Report 16227293 (Version 1)
Quarter: 2019Q2

REPORT INFORMATION
  Report Type: Spontaneous
  Country: US (occurrence: US)
  Receive Date: 20190423
  Receipt Date: 20190423
  Transmission Date: 20190711
  Serious: No
  Sender: FDA-Public Use
  Company Number: US-TEVA-2019-US-1033532

PATIENT
  Age: 49 Year

DRUGS (1)
  1. AMPHETAMINE W/DEXTROAMPHETAMINE [Suspect]
     Active Substance: AMPHETAMINE SULFATE\DEXTROAMPHETAMINE
     Indication: ATTENTION DEFICIT/HYPERACTIVITY DISORDER
     Dosage: 2/20MG CAPSULES IN THE MORNING
     Route: 065

REACTIONS (9)
  - Headache [Unknown]
  - Feeling abnormal [Unknown]
  - Product substitution issue [Unknown]
  - Discomfort [Unknown]
  - Malaise [Unknown]
  - Yawning [Unknown]
  - Thinking abnormal [Unknown]
  - Fatigue [Unknown]
  - Apathy [Unknown]
